FAERS Safety Report 9001946 (Version 1)
Quarter: 2013Q1

REPORT INFORMATION
  Report Type: Spontaneous
  Country: US (occurrence: US)
  Receive Date: 20130108
  Receipt Date: 20130108
  Transmission Date: 20140127
  Serious: No
  Sender: FDA-Public Use
  Company Number: US-009507513-1301USA000011

PATIENT
  Sex: Male
  Weight: 136.5 kg

DRUGS (3)
  1. VICTRELIS [Suspect]
     Indication: HEPATITIS C
     Dosage: UNK
     Route: 048
     Dates: start: 20120817
  2. PEGASYS [Suspect]
     Dosage: UNK
     Dates: start: 20120713
  3. RIBASPHERE [Suspect]
     Dosage: UNK
     Dates: start: 20120713

REACTIONS (1)
  - Injection site dryness [Recovered/Resolved]
